FAERS Safety Report 23507072 (Version 8)
Quarter: 2024Q1

REPORT INFORMATION
  Report Type: Spontaneous
  Country: AT (occurrence: None)
  Receive Date: 20240209
  Receipt Date: 20240229
  Transmission Date: 20240410
  Serious: Yes (Hospitalization)
  Sender: FDA-Public Use
  Company Number: AT-ROCHE-3497153

PATIENT
  Age: 48 Year
  Sex: Male

DRUGS (5)
  1. MABTHERA [Suspect]
     Active Substance: RITUXIMAB
     Indication: Nephrotic syndrome
     Route: 065
     Dates: start: 20130614, end: 20130615
  2. SOLUDACORTIN [Concomitant]
     Route: 042
  3. SOLUDACORTIN [Concomitant]
     Route: 042
  4. PERFALGAN [Concomitant]
     Active Substance: ACETAMINOPHEN
     Route: 042
  5. DIPHENHYDRAMINE [Concomitant]
     Active Substance: DIPHENHYDRAMINE

REACTIONS (2)
  - Drug intolerance [Unknown]
  - Off label use [Unknown]
